FAERS Safety Report 17361889 (Version 1)
Quarter: 2020Q1

REPORT INFORMATION
  Report Type: Spontaneous
  Country: US (occurrence: US)
  Receive Date: 20200131
  Receipt Date: 20200131
  Transmission Date: 20200409
  Serious: No
  Sender: FDA-Public Use
  Company Number: None

PATIENT
  Age: 43 Year
  Sex: Male
  Weight: 85.5 kg

DRUGS (2)
  1. IBUPROFEN 800MG [Concomitant]
     Active Substance: IBUPROFEN
     Dates: start: 20200123
  2. RUGBY MUCUS AND CHEST CONGESTION [Suspect]
     Active Substance: GUAIFENESIN
     Indication: COUGH
     Dosage: ?          OTHER FREQUENCY:EVERY 4 HOURS;?
     Route: 048
     Dates: start: 20200123, end: 20200126

REACTIONS (1)
  - Blood urine present [None]

NARRATIVE: CASE EVENT DATE: 20200123
